FAERS Safety Report 6446833-1 (Version None)
Quarter: 2009Q4

REPORT INFORMATION
  Report Type: 
  Country: None (occurrence: None)
  Receive Date: 20091119
  Receipt Date: 20091112
  Transmission Date: 20100525
  Serious: Yes (Other)
  Sender: FDA-Public Use
  Company Number: PHHY2009FR50168

PATIENT
  Age: 63 Year
  Sex: Female

DRUGS (2)
  1. VOLTAREN [Suspect]
     Indication: PHLEBITIS SUPERFICIAL
     Dosage: 100 MG, QD
     Dates: start: 20091109
  2. VOLTAREN [Concomitant]
     Dosage: 50 MG, QD
     Route: 048
     Dates: start: 20091109

REACTIONS (2)
  - APPLICATION SITE PAIN [None]
  - PROCTALGIA [None]
